FAERS Safety Report 4554979-8 (Version None)
Quarter: 2004Q4

REPORT INFORMATION
  Report Type: 
  Country: None (occurrence: None)
  Receive Date: 20041222
  Receipt Date: 20041109
  Transmission Date: 20050328
  Serious: Yes (Life-Threatening, Hospitalization)
  Sender: FDA-Public Use
  Company Number: 210284

PATIENT
  Age: 79 Year
  Sex: Male
  Weight: 57.1 kg

DRUGS (8)
  1. AVASTIN [Suspect]
     Indication: COLORECTAL CANCER METASTATIC
     Dosage: 420 MG, Q2W, INTRAVENOUS
     Route: 042
     Dates: start: 20040805, end: 20040826
  2. OXALIPLATIN(OXALIPLATIN) [Suspect]
     Indication: COLORECTAL CANCER METASTATIC
     Dosage: 128 MG, INTRAVENOUS
     Route: 042
     Dates: start: 20040805, end: 20040826
  3. FLUOROURACIL [Suspect]
     Indication: COLORECTAL CANCER METASTATIC
     Dosage: 400 MG, INTRAVENOUS
     Route: 042
     Dates: start: 20040805, end: 20040826
  4. XELODA [Suspect]
     Dosage: 1065 MG, BID
     Dates: start: 20040805
  5. PROCRIT (EPOETIN ALFA) [Concomitant]
  6. IRON (IRON) [Concomitant]
  7. REGLAN [Concomitant]
  8. COUMADIN [Concomitant]

REACTIONS (1)
  - GASTROINTESTINAL HAEMORRHAGE [None]
